FAERS Safety Report 5696311-2 (Version None)
Quarter: 2008Q2

REPORT INFORMATION
  Report Type: 
  Country: None (occurrence: None)
  Receive Date: 20080407
  Receipt Date: 20080326
  Transmission Date: 20081010
  Serious: Yes (Other)
  Sender: FDA-Public Use
  Company Number: US-PFIZER INC-2008010452

PATIENT
  Sex: Female
  Weight: 61 kg

DRUGS (5)
  1. LYRICA [Suspect]
     Indication: PAIN IN EXTREMITY
     Route: 048
     Dates: start: 20080125, end: 20080126
  2. LYRICA [Suspect]
     Indication: NECK PAIN
  3. ALEVE [Concomitant]
  4. CELEBREX [Concomitant]
     Route: 048
  5. NAPROSYN [Concomitant]
     Route: 048

REACTIONS (5)
  - DIZZINESS [None]
  - FALL [None]
  - PAIN [None]
  - SOMNOLENCE [None]
  - TREATMENT NONCOMPLIANCE [None]
